FAERS Safety Report 24578543 (Version 2)
Quarter: 2024Q4

REPORT INFORMATION
  Report Type: Spontaneous
  Country: US (occurrence: US)
  Receive Date: 20241105
  Receipt Date: 20241231
  Transmission Date: 20250114
  Serious: No
  Sender: RISING PHARMACEUTICALS
  Company Number: US-RISINGPHARMA-US-2024RISSPO00387

PATIENT
  Age: 72 Year
  Sex: Female
  Weight: 81.64 kg

DRUGS (3)
  1. METHIMAZOLE [Suspect]
     Active Substance: METHIMAZOLE
     Indication: Hyperthyroidism
     Route: 048
     Dates: start: 202409
  2. FAMOTIDINE [Concomitant]
     Active Substance: FAMOTIDINE
     Route: 065
  3. HYDROCHLOROTHIAZIDE [Concomitant]
     Active Substance: HYDROCHLOROTHIAZIDE
     Route: 065

REACTIONS (3)
  - Hot flush [Not Recovered/Not Resolved]
  - Gastrooesophageal reflux disease [Not Recovered/Not Resolved]
  - Drug ineffective [Unknown]

NARRATIVE: CASE EVENT DATE: 20241001
